FAERS Safety Report 4339635-3 (Version None)
Quarter: 2004Q1

REPORT INFORMATION
  Report Type: 
  Country: None (occurrence: None)
  Receive Date: 20040329
  Receipt Date: 20040107
  Transmission Date: 20041129
  Serious: No
  Sender: FDA-Public Use
  Company Number: 04P-163-0246539-00

PATIENT
  Age: 51 Year
  Sex: Female

DRUGS (13)
  1. HUMIRA [Suspect]
     Indication: RHEUMATOID ARTHRITIS
     Dosage: 1 IN 2 WK, SUBCUTANEOUS
     Route: 058
     Dates: start: 20030403, end: 20031112
  2. DARVOCET [Concomitant]
  3. METHOTREXATE [Concomitant]
  4. FOLIC ACID [Concomitant]
  5. FUROSEMIDE [Concomitant]
  6. WELLBUTRIN [Concomitant]
  7. CYCLOBENZAPRINE HYDROCHLORIDE [Concomitant]
  8. LORAZEPAM [Concomitant]
  9. DIAZEPAM [Concomitant]
  10. NAPROXEN [Concomitant]
  11. PROTOMIX [Concomitant]
  12. METOPROLOL [Concomitant]
  13. PREDNISONE [Concomitant]

REACTIONS (2)
  - MYALGIA [None]
  - SYSTEMIC LUPUS ERYTHEMATOSUS RASH [None]
